FAERS Safety Report 8104826-2 (Version None)
Quarter: 2012Q1

REPORT INFORMATION
  Report Type: 
  Country: None (occurrence: None)
  Receive Date: 20120130
  Receipt Date: 20120126
  Transmission Date: 20120608
  Serious: Yes (Other)
  Sender: FDA-Public Use
  Company Number: AU-ROCHE-1018695

PATIENT
  Age: 41 Year
  Sex: Female
  Weight: 55.8 kg

DRUGS (5)
  1. ACETAMINOPHEN [Concomitant]
     Dates: start: 20110727
  2. VOLTAREN [Concomitant]
     Dates: start: 20111104
  3. VEMURAFENIB [Suspect]
     Indication: METASTATIC MALIGNANT MELANOMA
     Route: 048
     Dates: start: 20110715, end: 20111202
  4. TEGRETOL [Concomitant]
     Dates: start: 19870101
  5. VEMURAFENIB [Suspect]
     Dates: start: 20111209

REACTIONS (1)
  - HYPOKALAEMIA [None]
